FAERS Safety Report 10783921 (Version 4)
Quarter: 2017Q1

REPORT INFORMATION
  Report Type: Report from Study
  Country: US (occurrence: US)
  Receive Date: 20150210
  Receipt Date: 20170220
  Transmission Date: 20170428
  Serious: Yes (Other)
  Sender: FDA-Public Use
  Company Number: US-ROCHE-1535223

PATIENT

DRUGS (9)
  1. RITUXIMAB [Suspect]
     Active Substance: RITUXIMAB
     Indication: CHRONIC LYMPHOCYTIC LEUKAEMIA
     Dosage: ON DAY1 CYCLE 1
     Route: 042
  2. ALLOPURINOL. [Concomitant]
     Active Substance: ALLOPURINOL
     Route: 048
  3. CYCLOPHOSPHAMIDE. [Suspect]
     Active Substance: CYCLOPHOSPHAMIDE
     Indication: CHRONIC LYMPHOCYTIC LEUKAEMIA
     Dosage: DAY 1
     Route: 065
  4. VALACYCLOVIR [Concomitant]
     Active Substance: VALACYCLOVIR HYDROCHLORIDE
     Route: 065
  5. PEGFILGRASTIM [Concomitant]
     Active Substance: PEGFILGRASTIM
  6. SULFAMETHOXAZOLE/TRIMETHOPRIM [Concomitant]
     Active Substance: SULFAMETHOXAZOLE\TRIMETHOPRIM
  7. BEVACIZUMAB [Suspect]
     Active Substance: BEVACIZUMAB
     Indication: CHRONIC LYMPHOCYTIC LEUKAEMIA
     Dosage: ON DAY 1 OF CYCLES 1-5 AND DAYS 1, 22,  AND 43 OF CYCLE 6
     Route: 042
  8. PENTOSTATIN. [Suspect]
     Active Substance: PENTOSTATIN
     Indication: CHRONIC LYMPHOCYTIC LEUKAEMIA
     Route: 065
  9. RITUXIMAB [Suspect]
     Active Substance: RITUXIMAB
     Dosage: ON DAY 2 OF CYCLE 1 AND DAY 1 OF CYCLES 2-6
     Route: 042

REACTIONS (30)
  - Dyspnoea [Unknown]
  - Left ventricular failure [Unknown]
  - Headache [Unknown]
  - Cough [Unknown]
  - Hypersensitivity [Unknown]
  - Neutropenia [Unknown]
  - Thrombocytopenia [Unknown]
  - Cystitis [Unknown]
  - Ascites [Unknown]
  - Bladder pain [Unknown]
  - Blood disorder [Unknown]
  - Blood sodium increased [Unknown]
  - Diarrhoea [Unknown]
  - Nausea [Unknown]
  - Renal failure [Unknown]
  - Vomiting [Unknown]
  - Depressed level of consciousness [Unknown]
  - Dehydration [Unknown]
  - Pyrexia [Unknown]
  - Blood glucose increased [Unknown]
  - Proteinuria [Unknown]
  - Blood creatinine increased [Unknown]
  - Haemoglobin decreased [Unknown]
  - Urinary bladder haemorrhage [Unknown]
  - Blood sodium decreased [Unknown]
  - Angiopathy [Unknown]
  - Haemorrhage intracranial [Unknown]
  - Left ventricular dysfunction [Unknown]
  - Hypertension [Unknown]
  - Fatigue [Unknown]
